FAERS Safety Report 4413412-7 (Version None)
Quarter: 2004Q3

REPORT INFORMATION
  Report Type: 
  Country: None (occurrence: None)
  Receive Date: 20040728
  Receipt Date: 20040713
  Transmission Date: 20050211
  Serious: Yes (Other)
  Sender: FDA-Public Use
  Company Number: US-JNJFOC-20040402058

PATIENT
  Age: 63 Year
  Sex: Male

DRUGS (5)
  1. DURAGESIC [Suspect]
     Indication: PAIN
     Dosage: 75; 25 UG/HR, 1 IN 72 HOUR, TRANSDERMAL
     Route: 062
     Dates: start: 20030101, end: 20040201
  2. DURAGESIC [Suspect]
     Indication: PAIN
     Dosage: 75; 25 UG/HR, 1 IN 72 HOUR, TRANSDERMAL
     Route: 062
     Dates: start: 20040201
  3. PERCOCET [Concomitant]
  4. ATIVAN [Concomitant]
  5. PRILOSEC [Concomitant]

REACTIONS (6)
  - ASTHENIA [None]
  - CONSTIPATION [None]
  - HEADACHE [None]
  - LETHARGY [None]
  - OVERDOSE [None]
  - SEDATION [None]
